FAERS Safety Report 10420807 (Version 1)
Quarter: 2014Q3

REPORT INFORMATION
  Report Type: Spontaneous
  Country: US (occurrence: None)
  Receive Date: 20140829
  Receipt Date: 20140829
  Transmission Date: 20150326
  Serious: Yes (Death, Hospitalization)
  Sender: FDA-Public Use
  Company Number: None

PATIENT
  Age: 64 Year
  Sex: Male

DRUGS (1)
  1. WARFARIN [Suspect]
     Active Substance: WARFARIN
     Dates: start: 20140414, end: 20140424

REACTIONS (4)
  - Cardiac failure congestive [None]
  - Condition aggravated [None]
  - Anticoagulation drug level below therapeutic [None]
  - Haemorrhage intracranial [None]

NARRATIVE: CASE EVENT DATE: 20140426
